FAERS Safety Report 7715507-9 (Version None)
Quarter: 2011Q3

REPORT INFORMATION
  Report Type: 
  Country: None (occurrence: None)
  Receive Date: 20110810
  Receipt Date: 20110523
  Transmission Date: 20111222
  Serious: No
  Sender: FDA-Public Use
  Company Number: 1000019947

PATIENT
  Age: 52 Year
  Sex: Female

DRUGS (8)
  1. SAVELLA [Suspect]
     Indication: FIBROMYALGIA
     Dosage: SEE IMAGE
     Route: 048
     Dates: start: 20110330, end: 20110331
  2. SAVELLA [Suspect]
     Indication: FIBROMYALGIA
     Dosage: SEE IMAGE
     Route: 048
     Dates: start: 20110405, end: 20110401
  3. SAVELLA [Suspect]
     Indication: FIBROMYALGIA
     Dosage: SEE IMAGE
     Route: 048
     Dates: start: 20110329, end: 20110329
  4. SAVELLA [Suspect]
     Indication: FIBROMYALGIA
     Dosage: SEE IMAGE
     Route: 048
     Dates: start: 20110401, end: 20110404
  5. AMBIEN [Concomitant]
  6. TRAZODONE HCL [Suspect]
  7. ACIPHEX [Suspect]
  8. SEROQUEL [Suspect]

REACTIONS (6)
  - DRY SKIN [None]
  - HYPERSENSITIVITY [None]
  - PRURITUS [None]
  - ERYTHEMA [None]
  - PAIN OF SKIN [None]
  - SKIN EXFOLIATION [None]
